FAERS Safety Report 10347526 (Version 1)
Quarter: 2014Q3

REPORT INFORMATION
  Report Type: Spontaneous
  Country: US (occurrence: None)
  Receive Date: 20140725
  Receipt Date: 20140725
  Transmission Date: 20150326
  Serious: Yes (Other)
  Sender: FDA-Public Use
  Company Number: 201405111

PATIENT
  Age: 55 Year
  Sex: Male

DRUGS (4)
  1. POLYCITRA-K (CITRIC ACID, POTASSIUM CITRATE) [Concomitant]
  2. PENTOXIFLLINE (PENTOXIFYLLINE) [Concomitant]
  3. XIAFLEX [Suspect]
     Active Substance: COLLAGENASE CLOSTRIDIUM HISTOLYTICUM
     Indication: PEYRONIE^S DISEASE
     Dosage: 1 N 1 D INTRALESIONAL
     Dates: start: 20140527, end: 20140527
  4. ALLOPURINOL (ALLOPURINOL) [Concomitant]
     Active Substance: ALLOPURINOL

REACTIONS (6)
  - Penile swelling [None]
  - Penile haematoma [None]
  - Localised oedema [None]
  - Cyst [None]
  - Penile contusion [None]
  - Penis disorder [None]

NARRATIVE: CASE EVENT DATE: 20140528
